FAERS Safety Report 22233734 (Version 1)
Quarter: 2023Q2

REPORT INFORMATION
  Report Type: Spontaneous
  Country: US (occurrence: None)
  Receive Date: 20230420
  Receipt Date: 20230420
  Transmission Date: 20230721
  Serious: No
  Sender: FDA-Public Use
  Company Number: US-ROCHE-3114873

PATIENT
  Sex: Female

DRUGS (1)
  1. ESBRIET [Suspect]
     Active Substance: PIRFENIDONE
     Indication: Interstitial lung disease
     Dosage: 2 PILLS, 3 TIMES DAILY
     Route: 048
     Dates: start: 20220528

REACTIONS (3)
  - Headache [Unknown]
  - Abdominal pain upper [Unknown]
  - Contusion [Unknown]
